FAERS Safety Report 5035820-6 (Version None)
Quarter: 2006Q2

REPORT INFORMATION
  Report Type: 
  Country: None (occurrence: None)
  Receive Date: 20060526
  Receipt Date: 20060203
  Transmission Date: 20061013
  Serious: No
  Sender: FDA-Public Use
  Company Number: FABR-11348

PATIENT
  Age: 12 Year
  Sex: Male
  Weight: 30 kg

DRUGS (3)
  1. FABRAZYME [Suspect]
     Indication: FABRY'S DISEASE
     Dosage: 35 MG Q2WKS IV
     Route: 042
     Dates: start: 20051015
  2. FENISTIL [Concomitant]
  3. NUREFLEX [Concomitant]

REACTIONS (3)
  - CHILLS [None]
  - PAIN IN EXTREMITY [None]
  - PANIC ATTACK [None]
